FAERS Safety Report 13540983 (Version 2)
Quarter: 2017Q2

REPORT INFORMATION
  Report Type: Spontaneous
  Country: US (occurrence: US)
  Receive Date: 20170512
  Receipt Date: 20170517
  Transmission Date: 20170830
  Serious: Yes (Other)
  Sender: FDA-Public Use
  Company Number: US-BAXTER-2017BAX020316

PATIENT
  Age: 67 Year
  Sex: Male

DRUGS (1)
  1. SEVOFLURANE, USP [Suspect]
     Active Substance: SEVOFLURANE
     Indication: ANAESTHESIA PROCEDURE
     Route: 045
     Dates: start: 20170427, end: 20170427

REACTIONS (3)
  - Incorrect dose administered [Unknown]
  - Unwanted awareness during anaesthesia [Unknown]
  - Device leakage [Unknown]

NARRATIVE: CASE EVENT DATE: 20170427
